FAERS Safety Report 23422242 (Version 2)
Quarter: 2024Q1

REPORT INFORMATION
  Report Type: Spontaneous
  Country: US (occurrence: US)
  Receive Date: 20240119
  Receipt Date: 20240325
  Transmission Date: 20240409
  Serious: Yes (Other)
  Sender: FDA-Public Use
  Company Number: US-BAYER-2024A004381

PATIENT
  Age: 32 Year
  Sex: Female
  Weight: 69.8 kg

DRUGS (1)
  1. MIRENA [Suspect]
     Active Substance: LEVONORGESTREL
     Indication: Contraception
     Dosage: 20?G/DAY
     Route: 015
     Dates: start: 20230713, end: 20240204

REACTIONS (3)
  - Uterine perforation [Recovered/Resolved]
  - Heavy menstrual bleeding [Recovered/Resolved]
  - Dysmenorrhoea [None]

NARRATIVE: CASE EVENT DATE: 20240109
